FAERS Safety Report 8145311-1 (Version None)
Quarter: 2012Q1

REPORT INFORMATION
  Report Type: 
  Country: None (occurrence: None)
  Receive Date: 20120217
  Receipt Date: 20120210
  Transmission Date: 20120608
  Serious: Yes (Death, Life-Threatening, Other)
  Sender: FDA-Public Use
  Company Number: JP-CELGENEUS-087-50794-12011876

PATIENT
  Sex: Female

DRUGS (23)
  1. VIDAZA [Suspect]
     Dosage: 75 MILLIGRAM/SQ. METER
     Route: 065
     Dates: start: 20111220, end: 20111226
  2. CILOSTAZOL [Concomitant]
     Route: 065
  3. LIPITOR [Concomitant]
     Route: 065
     Dates: end: 20111029
  4. MAGMITT [Concomitant]
     Route: 065
     Dates: start: 20111027
  5. SEDEKOPAN [Concomitant]
     Route: 065
  6. ALLOPURINOL [Concomitant]
     Route: 065
     Dates: start: 20111019, end: 20111027
  7. TANATRIL [Concomitant]
     Route: 065
  8. CARVEDILOL [Concomitant]
     Route: 065
  9. AMLODIPINE BESYLATE [Concomitant]
     Route: 065
  10. KYTRIL [Concomitant]
     Route: 065
     Dates: start: 20111118, end: 20111124
  11. GAMOFA [Concomitant]
     Route: 065
  12. ASPIRIN [Concomitant]
     Route: 065
  13. SULFAMETHOXAZOLE [Concomitant]
     Route: 065
     Dates: start: 20111009
  14. CEFEPIME DIHYDROCHLORIDE HYDRATE [Concomitant]
     Route: 065
     Dates: start: 20111210, end: 20111222
  15. KYTRIL [Concomitant]
     Route: 065
     Dates: start: 20111019, end: 20111025
  16. VIDAZA [Suspect]
     Dosage: 100 MILLIGRAM
     Route: 065
     Dates: start: 20111118, end: 20111124
  17. SENNARIDE [Concomitant]
     Route: 065
     Dates: start: 20111022
  18. FLUCONAZON [Concomitant]
     Route: 065
     Dates: start: 20111019
  19. MAXIPIME [Concomitant]
     Route: 065
     Dates: start: 20111207, end: 20111209
  20. VIDAZA [Suspect]
     Indication: MYELODYSPLASTIC SYNDROME
     Route: 065
     Dates: start: 20111019, end: 20111025
  21. SELBEX [Concomitant]
     Route: 065
  22. LANSOPRAZOLE [Concomitant]
     Route: 065
     Dates: start: 20111030
  23. ALBUMIN TANNATE [Concomitant]
     Route: 065
     Dates: start: 20111102, end: 20111104

REACTIONS (6)
  - FEMUR FRACTURE [None]
  - RENAL FAILURE [None]
  - FEBRILE NEUTROPENIA [None]
  - NEUTROPHIL COUNT DECREASED [None]
  - SEPTIC SHOCK [None]
  - ANAEMIA [None]
